FAERS Safety Report 19258092 (Version 1)
Quarter: 2021Q2

REPORT INFORMATION
  Report Type: Spontaneous
  Country: US (occurrence: US)
  Receive Date: 20210514
  Receipt Date: 20210514
  Transmission Date: 20210717
  Serious: Yes (Other)
  Sender: FDA-Public Use
  Company Number: None

PATIENT
  Sex: Female

DRUGS (2)
  1. BUPRENORPHINE 8 MG?NALOXONE 2 MG STRIPS [Suspect]
     Active Substance: BUPRENORPHINE\NALOXONE
     Route: 048
  2. BUPRENORPHINE 8 MG?NALOXONE 2 MG STRIPS [Concomitant]

REACTIONS (1)
  - Migraine [None]
